FAERS Safety Report 6312184-9 (Version None)
Quarter: 2009Q3

REPORT INFORMATION
  Report Type: 
  Country: None (occurrence: None)
  Receive Date: 20090817
  Receipt Date: 20090806
  Transmission Date: 20100115
  Serious: Yes (Hospitalization)
  Sender: FDA-Public Use
  Company Number: CO-ELI_LILLY_AND_COMPANY-CO200908002495

PATIENT
  Age: 44 Year
  Sex: Female

DRUGS (10)
  1. FORTEO [Suspect]
     Indication: OSTEOPOROSIS
     Dosage: 20 UG, DAILY (1/D)
     Route: 058
     Dates: start: 20080701
  2. FLANTADIN [Concomitant]
  3. EUTIROX [Concomitant]
     Dosage: 125 MG, UNKNOWN
     Route: 065
  4. OMEPRAZOLE [Concomitant]
  5. OXYCONTIN [Concomitant]
  6. COLOFAC [Concomitant]
  7. AZATIOPRIN [Concomitant]
  8. CALCIUM W/VITAMIN D NOS [Concomitant]
  9. MIACALCIN [Concomitant]
     Indication: SUPPLEMENTATION THERAPY
  10. CALCITRIOL [Concomitant]

REACTIONS (2)
  - BLOOD GLUCOSE INCREASED [None]
  - HYPERSENSITIVITY [None]
